FAERS Safety Report 7208547-X (Version None)
Quarter: 2010Q4

REPORT INFORMATION
  Report Type: 
  Country: None (occurrence: None)
  Receive Date: 20101230
  Receipt Date: 20101230
  Transmission Date: 20110411
  Serious: Yes (Hospitalization)
  Sender: FDA-Public Use
  Company Number: None

PATIENT
  Age: 24 Year
  Sex: Female
  Weight: 70.3075 kg

DRUGS (5)
  1. SINGULAIR [Suspect]
     Indication: OESOPHAGITIS
     Dosage: 10MG DAILY PO
     Route: 048
     Dates: start: 20101020, end: 20101229
  2. CHOLESTYRAMINE [Concomitant]
  3. FLOVENT [Concomitant]
  4. NYSTATIN [Concomitant]
  5. MEDROXYPROGESTERONE [Concomitant]

REACTIONS (2)
  - CHEST PAIN [None]
  - PANCREATITIS ACUTE [None]
